FAERS Safety Report 4283824-3 (Version None)
Quarter: 2004Q1

REPORT INFORMATION
  Report Type: 
  Country: None (occurrence: None)
  Receive Date: 20040130
  Receipt Date: 20040116
  Transmission Date: 20041129
  Serious: Yes (Other)
  Sender: FDA-Public Use
  Company Number: US-JNJFOC-20040103279

PATIENT
  Age: 62 Year
  Sex: Male
  Weight: 77.1115 kg

DRUGS (8)
  1. INFLIXIMAB (INFLIXIMAB, RECOMBINANT) LYOPHILIZED POWDER [Suspect]
     Indication: RHEUMATOID ARTHRITIS
     Dosage: INTRAVENOUS
     Route: 042
     Dates: start: 20020909
  2. PREDNISONE [Concomitant]
  3. ARAVA [Concomitant]
  4. COUMADIN [Concomitant]
  5. NORVASC [Concomitant]
  6. DIGOXIN [Concomitant]
  7. LIPITOR [Concomitant]
  8. DIOVAN [Concomitant]

REACTIONS (1)
  - BASAL CELL CARCINOMA [None]
